FAERS Safety Report 11900681 (Version 1)
Quarter: 2016Q1

REPORT INFORMATION
  Report Type: Spontaneous
  Country: US (occurrence: US)
  Receive Date: 20160108
  Receipt Date: 20160108
  Transmission Date: 20160526
  Serious: No
  Sender: FDA-Public Use
  Company Number: US-PFIZER INC-2015441774

PATIENT
  Age: 70 Year
  Sex: Male

DRUGS (15)
  1. SUTENT [Suspect]
     Active Substance: SUNITINIB MALATE
     Indication: MALIGNANT PERITONEAL NEOPLASM
     Dosage: 37.5 MG, DAILY
  2. PROAIR HFA [Concomitant]
     Active Substance: ALBUTEROL SULFATE
     Dosage: 2 DF, AS NEEDED (2 PUFFS AS NEEDED EVERY 4 HRS)
  3. CIALIS [Concomitant]
     Active Substance: TADALAFIL
     Dosage: 20 MG, AS NEEDED
  4. BUTALBITAL/ASA/CAFFEINE [Concomitant]
     Dosage: AS NEEDED, (ACETYLSALICYLIC ACID325MG/ BUTALBITAL 50MG/ CAFFEINE 40MG, THREE TIMES A DAY)
  5. BUSPIRONE HCL [Concomitant]
     Active Substance: BUSPIRONE HYDROCHLORIDE
     Dosage: 7.5 MG, 2X/DAY
  6. ADVAIR HFA [Concomitant]
     Active Substance: FLUTICASONE PROPIONATE\SALMETEROL XINAFOATE
     Dosage: UNK
  7. MACRODANTIN [Concomitant]
     Active Substance: NITROFURANTOIN
     Dosage: 100 MG, 2X/DAY (1 CAPSULE WITH FOOD OR MILK TWICE A DAY)
  8. AMBIEN [Concomitant]
     Active Substance: ZOLPIDEM TARTRATE
     Dosage: 10 MG, AS NEEDED (1 TABLET AT BEDTIME AS NEEDED QD)
  9. ALBUTEROL SULFATE. [Concomitant]
     Active Substance: ALBUTEROL SULFATE
     Dosage: UNK
  10. ADVAIR DISCUS [Concomitant]
     Dosage: 250-50 MCG, DOSE MISCELLANEOUS 1 PUFF EVERY 12 HRS
  11. IBUPROFEN. [Concomitant]
     Active Substance: IBUPROFEN
     Dosage: 600 MG, AS NEEDED (1 TABLET THREE TIMES A DAY PRN)
  12. FLUTICASONE PROPIONATE. [Concomitant]
     Active Substance: FLUTICASONE PROPIONATE
     Dosage: 50 UG, 1X/DAY (50 MCG/ACT SUSPENSION USE 1 SPRAY IN EACH NOSTRIL EVERY DAY ONCE DAILY)
     Route: 045
  13. VIAGRA [Concomitant]
     Active Substance: SILDENAFIL CITRATE
     Dosage: 100 MG, AS NEEDED (AS NEEDED ONCE A DAY)
  14. ACICLOVIR [Concomitant]
     Active Substance: ACYCLOVIR
     Dosage: 400 MG, 3X/DAY (400 MG TABLET 1 TABLET THREE TIMES A DAY)
  15. AMOXICILLIN. [Concomitant]
     Active Substance: AMOXICILLIN
     Dosage: 500 MG, 3X/DAY

REACTIONS (2)
  - Rash [Unknown]
  - Product use issue [Unknown]
